FAERS Safety Report 4762158-4 (Version None)
Quarter: 2005Q3

REPORT INFORMATION
  Report Type: 
  Country: None (occurrence: None)
  Receive Date: 20050906
  Receipt Date: 20050906
  Transmission Date: 20060218
  Serious: Yes (Other)
  Sender: FDA-Public Use
  Company Number: None

PATIENT
  Sex: Male
  Weight: 68.0396 kg

DRUGS (3)
  1. ADVAIR DISKUS 250/50 [Suspect]
     Indication: ASTHMA EXERCISE INDUCED
     Dosage: 1 INHALATION   TWICE DAILY   PO
     Route: 048
     Dates: start: 20050314, end: 20050902
  2. FLONAISE [Concomitant]
  3. MAXAIR [Concomitant]

REACTIONS (12)
  - ARTHRALGIA [None]
  - BALANCE DISORDER [None]
  - DIZZINESS [None]
  - EPISTAXIS [None]
  - FACE INJURY [None]
  - FALL [None]
  - HEAD INJURY [None]
  - HEADACHE [None]
  - JOINT INJURY [None]
  - LIMB INJURY [None]
  - SHOULDER PAIN [None]
  - SYNCOPE [None]
